FAERS Safety Report 8818450 (Version 1)
Quarter: 2012Q4

REPORT INFORMATION
  Report Type: Spontaneous
  Country: BR (occurrence: None)
  Receive Date: 20121003
  Receipt Date: 20121003
  Transmission Date: 20130627
  Serious: Yes (Hospitalization)
  Sender: FDA-Public Use
  Company Number: 2012-001935

PATIENT
  Age: 47 Year
  Sex: Female
  Weight: 62 kg

DRUGS (2)
  1. ACTONEL (RISEDRONATE SODIUM) TABLET, 150MG [Suspect]
     Indication: BONE MASS DECREASED
     Route: 048
     Dates: start: 20120519, end: 2012
  2. OS-CAL D [Concomitant]

REACTIONS (5)
  - Chest discomfort [None]
  - Sensation of pressure [None]
  - Dyspepsia [None]
  - Non-cardiac chest pain [None]
  - Myalgia [None]
